FAERS Safety Report 8972239 (Version 2)
Quarter: 2013Q1

REPORT INFORMATION
  Report Type: Spontaneous
  Country: US (occurrence: None)
  Receive Date: 20121211
  Receipt Date: 20130128
  Transmission Date: 20140127
  Serious: Yes (Death, Hospitalization)
  Sender: FDA-Public Use
  Company Number: 2012-1458

PATIENT
  Age: 81 Year
  Sex: Female

DRUGS (1)
  1. KYPROLIS [Suspect]
     Indication: PLASMA CELL MYELOMA
     Dosage: (35 MG,2 IN 1 WK)
     Route: 042
     Dates: start: 20121109

REACTIONS (14)
  - Platelet count decreased [None]
  - Arthralgia [None]
  - Disorientation [None]
  - Mental status changes [None]
  - Asthenia [None]
  - Abasia [None]
  - Bacteraemia [None]
  - Urinary tract infection [None]
  - Unresponsive to stimuli [None]
  - Hypercalcaemia [None]
  - Blood urea increased [None]
  - Dehydration [None]
  - Plasma cell myeloma [None]
  - Headache [None]
